FAERS Safety Report 11729362 (Version 1)
Quarter: 2015Q4

REPORT INFORMATION
  Report Type: Spontaneous
  Country: US (occurrence: US)
  Receive Date: 20151112
  Receipt Date: 20151112
  Transmission Date: 20160304
  Serious: No
  Sender: FDA-Public Use
  Company Number: US-APOTEX-2015AP007019

PATIENT
  Age: 25 Year
  Sex: Male

DRUGS (3)
  1. SERAX                              /00040901/ [Concomitant]
     Dosage: 15 MG, UNK
  2. RISPERIDONE. [Suspect]
     Active Substance: RISPERIDONE
     Indication: BIPOLAR DISORDER
     Dosage: 2 MG, BID
     Route: 048
  3. SERAX                              /00040901/ [Concomitant]
     Indication: ALCOHOLISM
     Dosage: UNK UNK, PRN
     Route: 065

REACTIONS (2)
  - Sinus tachycardia [Recovered/Resolved]
  - Hypertension [Recovered/Resolved]
